FAERS Safety Report 6015996-4 (Version None)
Quarter: 2008Q4

REPORT INFORMATION
  Report Type: 
  Country: None (occurrence: None)
  Receive Date: 20081222
  Receipt Date: 20081211
  Transmission Date: 20090506
  Serious: Yes (Life-Threatening, Hospitalization, Disabling)
  Sender: FDA-Public Use
  Company Number: CN-BRISTOL-MYERS SQUIBB COMPANY-14449953

PATIENT
  Age: 38 Year
  Sex: Female

DRUGS (2)
  1. ABILIFY [Suspect]
     Indication: SCHIZOPHRENIA
     Dosage: STARTED AS 5MG DAILY ON 05-NOV-08/DOSE INCREASED TO 10MG ON 17-NOV-2008 AND 15MG AFTER 10 DAYS
     Route: 048
     Dates: start: 20081102, end: 20081214
  2. RISPERIDONE [Suspect]
     Indication: SCHIZOPHRENIA
     Dosage: DOSAGE WAS REDUCED TO 4MG ON 2-NOV-2008 AND TO 3MG AFTER 14 DAYS TO 2MG AFTER 20 DAYS
     Route: 048
     Dates: start: 20081005, end: 20081208

REACTIONS (1)
  - LIVER DISORDER [None]
